FAERS Safety Report 13584429 (Version 1)
Quarter: 2017Q2

REPORT INFORMATION
  Report Type: Spontaneous
  Country: ES (occurrence: ES)
  Receive Date: 20170526
  Receipt Date: 20170526
  Transmission Date: 20170830
  Serious: Yes (Hospitalization, Disabling)
  Sender: FDA-Public Use
  Company Number: ES-ACCORD-051783

PATIENT
  Age: 52 Year
  Sex: Female
  Weight: 40 kg

DRUGS (1)
  1. NORETHISTERONE [Suspect]
     Active Substance: NORETHINDRONE
     Indication: MENORRHAGIA

REACTIONS (1)
  - Embolism arterial [Recovered/Resolved]
